FAERS Safety Report 7022821-1 (Version None)
Quarter: 2010Q3

REPORT INFORMATION
  Report Type: 
  Country: None (occurrence: None)
  Receive Date: 20100930
  Receipt Date: 20100726
  Transmission Date: 20110219
  Serious: Yes (Hospitalization)
  Sender: FDA-Public Use
  Company Number: B0658937A

PATIENT
  Age: 68 Year
  Sex: Male

DRUGS (9)
  1. ARTIST [Suspect]
     Indication: HYPERTENSION
     Dosage: 2.5MG PER DAY
     Route: 048
     Dates: start: 20090109
  2. LIPITOR [Suspect]
     Indication: PRODUCT USED FOR UNKNOWN INDICATION
     Route: 065
  3. ASPIRIN [Concomitant]
     Dates: start: 20081201, end: 20100507
  4. CANDESARTAN CILEXETIL [Concomitant]
     Dates: start: 20081201, end: 20100507
  5. MICARDIS [Concomitant]
     Dates: start: 20081201, end: 20100507
  6. LASIX [Concomitant]
     Dates: start: 20081201, end: 20100507
  7. TAKEPRON [Concomitant]
  8. ALDACTONE [Concomitant]
     Dates: start: 20081201, end: 20100507
  9. EPADEL [Concomitant]
     Dates: start: 20081201, end: 20100507

REACTIONS (7)
  - DYSPNOEA [None]
  - HEPATIC ENZYME DECREASED [None]
  - HEPATIC ENZYME INCREASED [None]
  - HEPATIC FUNCTION ABNORMAL [None]
  - HEPATITIS [None]
  - JAUNDICE [None]
  - MALAISE [None]
